FAERS Safety Report 6937557-2 (Version None)
Quarter: 2010Q3

REPORT INFORMATION
  Report Type: 
  Country: None (occurrence: None)
  Receive Date: 20100823
  Receipt Date: 20100823
  Transmission Date: 20110219
  Serious: Yes (Life-Threatening, Hospitalization, Other)
  Sender: FDA-Public Use
  Company Number: None

PATIENT
  Age: 70 Year
  Sex: Male
  Weight: 115.6672 kg

DRUGS (1)
  1. BCG UNKNOWN UNKNOWN [Suspect]
     Indication: BLADDER TRANSITIONAL CELL CARCINOMA STAGE II
     Dosage: UNKNOWN ONCE INTRAVESICAL
     Route: 043
     Dates: start: 20100729, end: 20100729

REACTIONS (3)
  - ANXIETY [None]
  - ARTHRALGIA [None]
  - SEPSIS [None]
